FAERS Safety Report 9459633 (Version 1)
Quarter: 2013Q3

REPORT INFORMATION
  Report Type: Spontaneous
  Country: US (occurrence: US)
  Receive Date: 20130815
  Receipt Date: 20130815
  Transmission Date: 20140515
  Serious: No
  Sender: FDA-Public Use
  Company Number: US-COVIDIEN/TYCO HEALTHCARE/MALLINCKRODT-T201302365

PATIENT
  Age: 85 Year
  Sex: Female
  Weight: 38.55 kg

DRUGS (2)
  1. FENTANYL TRANSDERMAL SYSTEM [Suspect]
     Dosage: 50 MCG/HR Q 72 HRS
     Route: 062
     Dates: start: 20130515, end: 20130520
  2. FENTANYL TRANSDERMAL SYSTEM [Suspect]
     Dosage: 25 MCG/HR
     Dates: end: 201305

REACTIONS (6)
  - Tremor [Recovering/Resolving]
  - Diarrhoea [Recovering/Resolving]
  - Chills [Not Recovered/Not Resolved]
  - Hyperhidrosis [Not Recovered/Not Resolved]
  - Malaise [Unknown]
  - Wrong technique in drug usage process [Not Recovered/Not Resolved]
